FAERS Safety Report 9212552 (Version 2)
Quarter: 2013Q2

REPORT INFORMATION
  Report Type: Spontaneous
  Country: US (occurrence: US)
  Receive Date: 20130405
  Receipt Date: 20130423
  Transmission Date: 20140414
  Serious: Yes (Other)
  Sender: FDA-Public Use
  Company Number: US-BIOGENIDEC-2013BI029596

PATIENT
  Age: 71 Year
  Sex: Female

DRUGS (7)
  1. TYSABRI [Suspect]
     Indication: MULTIPLE SCLEROSIS
     Route: 042
     Dates: start: 20070202, end: 20130219
  2. ALENDRONATE [Concomitant]
     Route: 048
  3. BENADRYL [Concomitant]
  4. CARBAMAZEPINE [Concomitant]
  5. CRESTOR [Concomitant]
  6. LEVOTHYROXINE [Concomitant]
  7. LYRICA [Concomitant]

REACTIONS (1)
  - Idiopathic thrombocytopenic purpura [Recovered/Resolved]
